FAERS Safety Report 7765598-4 (Version None)
Quarter: 2011Q3

REPORT INFORMATION
  Report Type: 
  Country: None (occurrence: None)
  Receive Date: 20110921
  Receipt Date: 20110915
  Transmission Date: 20111222
  Serious: Yes (Hospitalization)
  Sender: FDA-Public Use
  Company Number: PHHY2011JP81956

PATIENT
  Age: 40 Year
  Sex: Female

DRUGS (1)
  1. VOLTAREN [Suspect]
     Dosage: 1250 MG, UNK
     Route: 048
     Dates: end: 20110912

REACTIONS (2)
  - SUICIDE ATTEMPT [None]
  - OVERDOSE [None]
